FAERS Safety Report 7392857-X (Version None)
Quarter: 2011Q2

REPORT INFORMATION
  Report Type: 
  Country: None (occurrence: None)
  Receive Date: 20110404
  Receipt Date: 20110329
  Transmission Date: 20111010
  Serious: Yes (Hospitalization)
  Sender: FDA-Public Use
  Company Number: PHHO2011US04215

PATIENT
  Sex: Male
  Weight: 111 kg

DRUGS (13)
  1. DETROL [Concomitant]
  2. ZOFRAN [Concomitant]
  3. CLEOCIN T [Concomitant]
     Indication: RASH
  4. PERCOCET [Concomitant]
  5. PRILOSEC [Concomitant]
  6. FOLIC ACID [Concomitant]
  7. NO TREATMENT RECEIVED [Suspect]
     Indication: NEOPLASM
  8. ASPIRIN [Concomitant]
  9. OXYCONTIN [Concomitant]
  10. COMPAZINE [Concomitant]
     Indication: PROPHYLAXIS OF NAUSEA AND VOMITING
  11. DALTEPARIN SODIUM [Concomitant]
  12. ATIVAN [Concomitant]
     Indication: PROPHYLAXIS OF NAUSEA AND VOMITING
  13. OXYCODONE [Concomitant]

REACTIONS (5)
  - SUBCLAVIAN VEIN THROMBOSIS [None]
  - SWELLING [None]
  - NECK PAIN [None]
  - TENDERNESS [None]
  - JUGULAR VEIN THROMBOSIS [None]
